FAERS Safety Report 11934492 (Version 2)
Quarter: 2016Q1

REPORT INFORMATION
  Report Type: Report from Study
  Country: AR (occurrence: AR)
  Receive Date: 20160121
  Receipt Date: 20160217
  Transmission Date: 20160526
  Serious: Yes (Other)
  Sender: FDA-Public Use
  Company Number: PHHY2015AR113380

PATIENT
  Sex: Female

DRUGS (2)
  1. SEEBRI BREEZHALER [Suspect]
     Active Substance: GLYCOPYRROLATE
     Indication: PNEUMONIA
  2. SEEBRI BREEZHALER [Suspect]
     Active Substance: GLYCOPYRROLATE
     Indication: BRONCHITIS
     Dosage: 1 DF, QD (1 ADMINISTRATION DAILY)
     Route: 065

REACTIONS (9)
  - Memory impairment [Not Recovered/Not Resolved]
  - Dizziness [Recovered/Resolved]
  - Fall [Recovered/Resolved]
  - Joint injury [Recovered/Resolved]
  - Off label use [Unknown]
  - Nervousness [Unknown]
  - Pyrexia [Recovering/Resolving]
  - Bronchitis [Recovering/Resolving]
  - Contusion [Recovered/Resolved]
